FAERS Safety Report 9801162 (Version 2)
Quarter: 2014Q1

REPORT INFORMATION
  Report Type: Spontaneous
  Country: US (occurrence: US)
  Receive Date: 20140107
  Receipt Date: 20140331
  Transmission Date: 20141002
  Serious: Yes (Congenital Anomaly, Other)
  Sender: FDA-Public Use
  Company Number: US-PFIZER INC-2014000815

PATIENT
  Sex: Male

DRUGS (21)
  1. SERTRALINE HCL [Suspect]
     Indication: ANXIETY
     Dosage: UNK
     Route: 064
     Dates: start: 2008, end: 2010
  2. SERTRALINE HCL [Suspect]
     Indication: DEPRESSION
  3. SERTRALINE HCL [Suspect]
     Indication: AFFECTIVE DISORDER
  4. IBUPROFEN [Concomitant]
     Dosage: UNK
     Route: 064
  5. METHYLPREDNISOLONE [Concomitant]
     Dosage: UNK
     Route: 064
  6. LIDOCAINE [Concomitant]
     Dosage: UNK
     Route: 064
  7. OXYCODONE-ACETAMINOPHEN [Concomitant]
     Dosage: UNK
     Route: 064
  8. LEVAQUIN [Concomitant]
     Dosage: UNK
     Route: 064
  9. PROMETHAZINE [Concomitant]
     Dosage: UNK
     Route: 064
  10. RANITIDINE [Concomitant]
     Dosage: UNK
     Route: 064
  11. CIPROFLOXACIN HCL [Concomitant]
     Dosage: UNK
     Route: 064
  12. CYCLOBENZAPRINE [Concomitant]
     Dosage: UNK
     Route: 064
  13. DIAZEPAM [Concomitant]
     Dosage: UNK
     Route: 064
  14. CEFUROXIME AXETIL [Concomitant]
     Dosage: UNK
     Route: 064
  15. METRONIDAZOLE [Concomitant]
     Dosage: UNK
     Route: 064
  16. ACETAMINOPHEN [Concomitant]
     Dosage: UNK
     Route: 064
  17. WELLBUTRIN [Concomitant]
     Dosage: UNK
     Route: 064
  18. BUDEPRION SR HCL [Concomitant]
     Dosage: UNK
     Route: 064
  19. LOVENOX [Concomitant]
     Dosage: UNK
     Route: 064
  20. ENDOCET [Concomitant]
     Dosage: UNK
     Route: 064
  21. PRO-AIR [Concomitant]
     Dosage: UNK
     Route: 064

REACTIONS (10)
  - Maternal exposure during pregnancy [Unknown]
  - Transposition of the great vessels [Unknown]
  - Pulmonary artery atresia [Unknown]
  - Heart disease congenital [Unknown]
  - Congenital aortic anomaly [Unknown]
  - Ventricular septal defect [Unknown]
  - Patent ductus arteriosus [Unknown]
  - Vascular anomaly [Unknown]
  - Vein disorder [Unknown]
  - Spleen disorder [Unknown]
